FAERS Safety Report 9341686 (Version 1)
Quarter: 2013Q2

REPORT INFORMATION
  Report Type: Spontaneous
  Country: GR (occurrence: None)
  Receive Date: 20130606
  Receipt Date: 20130606
  Transmission Date: 20140414
  Serious: Yes (Other)
  Sender: FDA-Public Use
  Company Number: SYM-2013-04259

PATIENT
  Age: 31 Year
  Sex: Male

DRUGS (2)
  1. METRONIDAZOLE [Suspect]
     Indication: LIVER ABSCESS
     Route: 048
     Dates: start: 20130327, end: 20130415
  2. CIPROFLOXACIN [Suspect]
     Indication: LIVER ABSCESS
     Route: 048
     Dates: start: 20130327, end: 20130415

REACTIONS (1)
  - Posterior reversible encephalopathy syndrome [None]
